FAERS Safety Report 21780277 (Version 1)
Quarter: 2022Q4

REPORT INFORMATION
  Report Type: Spontaneous
  Country: CN (occurrence: CN)
  Receive Date: 20221227
  Receipt Date: 20221227
  Transmission Date: 20230112
  Serious: Yes (Hospitalization)
  Sender: FDA-Public Use
  Company Number: CN-ALKEM LABORATORIES LIMITED-CN-ALKEM-2022-14480

PATIENT

DRUGS (3)
  1. MORPHINE SULFATE [Suspect]
     Active Substance: MORPHINE SULFATE
     Indication: Knee arthroplasty
     Dosage: 5 MILLIGRAM (THE DRUGS WERE DILUTED WITH SALINE TO 50 ML)
     Route: 052
  2. ROPIVACAINE [Suspect]
     Active Substance: ROPIVACAINE
     Indication: Knee arthroplasty
     Dosage: 300 MILLIGRAM (THE DRUGS WERE DILUTED WITH SALINE TO 50 ML)
     Route: 052
  3. TRANEXAMIC ACID [Suspect]
     Active Substance: TRANEXAMIC ACID
     Indication: Knee arthroplasty
     Dosage: 2 GRAM (20 ML WAS INJECTED INTO ARTICULAR CAVITY)
     Route: 014

REACTIONS (1)
  - Pyrexia [Unknown]
